FAERS Safety Report 9444740 (Version 2)
Quarter: 2013Q3

REPORT INFORMATION
  Report Type: Report from Study
  Country: BR (occurrence: BR)
  Receive Date: 20130807
  Receipt Date: 20130912
  Transmission Date: 20140515
  Serious: Yes (Other)
  Sender: FDA-Public Use
  Company Number: PHHY2013BR084797

PATIENT
  Sex: Male

DRUGS (4)
  1. FORASEQ [Suspect]
     Indication: ASTHMA
     Dosage: 1 DF, EACH TREATMENT, AT NIGHT
  2. DIOVAN HCT [Suspect]
     Dosage: 1 DF, (160 MG VALS AND 12.5 MG HYDR) DAILY
  3. DIOVAN HCT [Suspect]
     Dosage: UNK UKN, UNK
  4. XALATAN [Concomitant]
     Dosage: 1 DROP IN EACH EYE AT NIGHT

REACTIONS (3)
  - Pneumonia [Recovering/Resolving]
  - Eye irritation [Not Recovered/Not Resolved]
  - Pollakiuria [Recovered/Resolved]
